FAERS Safety Report 16012913 (Version 7)
Quarter: 2023Q2

REPORT INFORMATION
  Report Type: Other
  Country: US (occurrence: None)
  Receive Date: 20190227
  Receipt Date: 20230609
  Transmission Date: 20230721
  Serious: Yes (Hospitalization, Other)
  Sender: FDA-Public Use
  Company Number: US-ROCHE-2159435

PATIENT
  Age: 71 Year
  Sex: Female
  Weight: 69.008 kg

DRUGS (19)
  1. OCREVUS [Suspect]
     Active Substance: OCRELIZUMAB
     Indication: Relapsing-remitting multiple sclerosis
     Dosage: DATE OF TREATMENT :01/AUG/2018, 01/FEB/2019, 02/AUG/2019, 13/MAR/2020, 25/MAR/2022, 23/JAN/2018, 06/
     Route: 042
     Dates: start: 201801
  2. OCREVUS [Suspect]
     Active Substance: OCRELIZUMAB
     Dosage: SECOND HALF DOSE
     Route: 042
     Dates: start: 201802
  3. OCREVUS [Suspect]
     Active Substance: OCRELIZUMAB
     Route: 042
     Dates: start: 201802
  4. HYDROCODONE [Concomitant]
     Active Substance: HYDROCODONE
  5. LYRICA [Concomitant]
     Active Substance: PREGABALIN
  6. BOTOX [Concomitant]
     Active Substance: ONABOTULINUMTOXINA
  7. NEXIUM [Concomitant]
     Active Substance: ESOMEPRAZOLE MAGNESIUM
  8. MODAFINIL [Concomitant]
     Active Substance: MODAFINIL
  9. BUTALBITAL, ACETAMINOPHEN, AND CAFFEINE [Concomitant]
     Active Substance: ACETAMINOPHEN\BUTALBITAL\CAFFEINE
  10. METHOCARBAMOL [Concomitant]
     Active Substance: METHOCARBAMOL
     Dosage: 750MG, TABLETS, 1 EVERY 8 HOURS BY MOUTH
  11. PEPCID [Concomitant]
     Active Substance: FAMOTIDINE
  12. OSPHENA [Concomitant]
     Active Substance: OSPEMIFENE
     Dosage: 60 MG ONCE A DAY ORAL PILL
     Dates: start: 202201
  13. BUPROPION [Concomitant]
     Active Substance: BUPROPION
     Indication: Depression
     Dosage: 150 MG ONCE A DAY ORAL PILL
     Dates: start: 2011
  14. CELEBREX [Concomitant]
     Active Substance: CELECOXIB
     Dosage: 200 MG ONCE A DAY ORAL CAPSULE
  15. MONTELUKAST [Concomitant]
     Active Substance: MONTELUKAST SODIUM
     Dosage: 10 MG ONCE A DAY ORAL TABLET
  16. ADVAIR HFA [Concomitant]
     Active Substance: FLUTICASONE PROPIONATE\SALMETEROL XINAFOATE
     Dosage: TWICE A DAY 115/21 MCG RESPIRATORY (INHALATION)
  17. ESOMEPRAZOLE [Concomitant]
     Active Substance: ESOMEPRAZOLE
     Dosage: TWICE A DAY ORAL CAPSULE 40 MG
  18. DULOXETINE [Concomitant]
     Active Substance: DULOXETINE
     Dosage: 60 MG ONCE A DAY ORAL CAPSULE IN THE EVENING
  19. PREGABALIN [Concomitant]
     Active Substance: PREGABALIN

REACTIONS (11)
  - Multiple sclerosis [Not Recovered/Not Resolved]
  - Depressed level of consciousness [Unknown]
  - Cognitive disorder [Not Recovered/Not Resolved]
  - Somnolence [Recovered/Resolved]
  - Throat irritation [Recovered/Resolved]
  - Ear pruritus [Recovered/Resolved]
  - Influenza [Recovering/Resolving]
  - Migraine [Recovered/Resolved]
  - Headache [Not Recovered/Not Resolved]
  - Urinary tract infection [Recovered/Resolved]
  - Gait disturbance [Not Recovered/Not Resolved]

NARRATIVE: CASE EVENT DATE: 20190101
